FAERS Safety Report 8306131-8 (Version None)
Quarter: 2012Q2

REPORT INFORMATION
  Report Type: 
  Country: None (occurrence: None)
  Receive Date: 20120423
  Receipt Date: 20120417
  Transmission Date: 20120825
  Serious: No
  Sender: FDA-Public Use
  Company Number: US-TEVA-334045USA

PATIENT
  Sex: Female
  Weight: 62.652 kg

DRUGS (3)
  1. PROAIR HFA [Suspect]
     Indication: CHRONIC OBSTRUCTIVE PULMONARY DISEASE
     Dosage: 360 MICROGRAM;
     Route: 055
     Dates: start: 20111101
  2. TRAMADOL HCL [Concomitant]
     Route: 048
  3. DIAZEPAM [Concomitant]
     Route: 048

REACTIONS (1)
  - BREATH ALCOHOL TEST POSITIVE [None]
